FAERS Safety Report 5505315-1 (Version None)
Quarter: 2007Q4

REPORT INFORMATION
  Report Type: 
  Country: None (occurrence: None)
  Receive Date: 20071102
  Receipt Date: 20071026
  Transmission Date: 20080405
  Serious: Yes (Other)
  Sender: FDA-Public Use
  Company Number: B0486215A

PATIENT
  Sex: Male

DRUGS (3)
  1. AUGMENTIN '125' [Suspect]
     Route: 048
     Dates: start: 20070227
  2. TAMIFLU [Concomitant]
     Dates: start: 20070301, end: 20070101
  3. ACETAMINOPHEN [Concomitant]
     Dosage: 1000MG PER DAY
     Dates: start: 20070301, end: 20070101

REACTIONS (8)
  - DERMATITIS EXFOLIATIVE [None]
  - ERYTHEMA [None]
  - OEDEMA PERIPHERAL [None]
  - POOR QUALITY SLEEP [None]
  - PRURITUS [None]
  - RASH [None]
  - SKIN EXFOLIATION [None]
  - TOXIC SKIN ERUPTION [None]
